FAERS Safety Report 17301878 (Version 1)
Quarter: 2020Q1

REPORT INFORMATION
  Report Type: Report from Study
  Country: US (occurrence: US)
  Receive Date: 20200122
  Receipt Date: 20200122
  Transmission Date: 20200409
  Serious: Yes (Life-Threatening, Hospitalization)
  Sender: FDA-Public Use
  Company Number: US-BRISTOL-MYERS SQUIBB COMPANY-BMS-2020-004236

PATIENT
  Age: 72 Year
  Sex: Male
  Weight: 121.6 kg

DRUGS (2)
  1. IPILIMUMAB [Suspect]
     Active Substance: IPILIMUMAB
     Indication: MALIGNANT MELANOMA
     Dosage: 359 MILLIGRAM, TOTAL
     Route: 042
     Dates: start: 20190829, end: 20191210
  2. NIVOLUMAB [Suspect]
     Active Substance: NIVOLUMAB
     Indication: MALIGNANT MELANOMA
     Dosage: 120 MILLIGRAM, TOTAL
     Route: 042
     Dates: start: 20190829, end: 20191210

REACTIONS (2)
  - Hypotension [Recovering/Resolving]
  - Colitis [Recovering/Resolving]

NARRATIVE: CASE EVENT DATE: 20191226
